FAERS Safety Report 5746419-8 (Version None)
Quarter: 2008Q2

REPORT INFORMATION
  Report Type: 
  Country: None (occurrence: None)
  Receive Date: 20080522
  Receipt Date: 20080512
  Transmission Date: 20081010
  Serious: Yes (Hospitalization)
  Sender: FDA-Public Use
  Company Number: A0727758A

PATIENT
  Age: 54 Year
  Sex: Female

DRUGS (2)
  1. LAPATINIB [Suspect]
     Indication: BREAST CANCER METASTATIC
     Dosage: 1250MG PER DAY
     Route: 048
  2. XELODA [Suspect]
     Indication: BREAST CANCER METASTATIC
     Dosage: 2000MGM2 PER DAY
     Route: 048

REACTIONS (1)
  - PLEURAL INFECTION [None]
